FAERS Safety Report 15565998 (Version 1)
Quarter: 2018Q4

REPORT INFORMATION
  Report Type: Spontaneous
  Country: US (occurrence: US)
  Receive Date: 20181030
  Receipt Date: 20181030
  Transmission Date: 20190205
  Serious: Yes (Hospitalization)
  Sender: FDA-Public Use
  Company Number: US-JNJFOC-20181035489

PATIENT
  Age: 79 Year
  Sex: Female

DRUGS (7)
  1. KLONOPIN [Concomitant]
     Active Substance: CLONAZEPAM
     Indication: PAIN
     Route: 065
  2. KLONOPIN [Concomitant]
     Active Substance: CLONAZEPAM
     Indication: PAIN
     Route: 065
  3. FENTANYL. [Suspect]
     Active Substance: FENTANYL
     Indication: BACK PAIN
     Route: 062
     Dates: start: 201602
  4. FENTANYL. [Suspect]
     Active Substance: FENTANYL
     Indication: BACK PAIN
     Route: 062
     Dates: end: 201804
  5. FENTANYL. [Suspect]
     Active Substance: FENTANYL
     Indication: BACK PAIN
     Route: 062
  6. DURAGESIC [Suspect]
     Active Substance: FENTANYL
     Indication: BACK PAIN
     Route: 062
  7. FENTANYL. [Suspect]
     Active Substance: FENTANYL
     Indication: BACK PAIN
     Route: 062
     Dates: start: 201804

REACTIONS (9)
  - Myocardial infarction [Unknown]
  - Asthenia [Not Recovered/Not Resolved]
  - Diarrhoea [Unknown]
  - Coeliac disease [Not Recovered/Not Resolved]
  - Hypertension [Not Recovered/Not Resolved]
  - Feeling abnormal [Unknown]
  - Restless legs syndrome [Not Recovered/Not Resolved]
  - Amnesia [Unknown]
  - Vomiting [Unknown]

NARRATIVE: CASE EVENT DATE: 201511
